FAERS Safety Report 13700644 (Version 3)
Quarter: 2017Q4

REPORT INFORMATION
  Report Type: Other
  Country: IT (occurrence: IT)
  Receive Date: 20170629
  Receipt Date: 20171214
  Transmission Date: 20180320
  Serious: Yes (Other)
  Sender: FDA-Public Use
  Company Number: IT-DENTSPLY-2017SCDP000063

PATIENT
  Age: 72 Year
  Sex: Male

DRUGS (1)
  1. MEPIVACAINE HCL [Suspect]
     Active Substance: MEPIVACAINE\MEPIVACAINE HYDROCHLORIDE
     Indication: LOCAL ANAESTHESIA
     Dosage: 1 DF DOSAGE FORM TOTAL
     Route: 008
     Dates: start: 20170524, end: 20170524

REACTIONS (3)
  - Nausea [Recovered/Resolved]
  - Focal dyscognitive seizures [Recovered/Resolved]
  - Clonus [Recovered/Resolved]

NARRATIVE: CASE EVENT DATE: 20170524
